FAERS Safety Report 10076806 (Version 2)
Quarter: 2014Q2

REPORT INFORMATION
  Report Type: Spontaneous
  Country: FR (occurrence: FR)
  Receive Date: 20140414
  Receipt Date: 20140424
  Transmission Date: 20141212
  Serious: Yes (Disabling, Other)
  Sender: FDA-Public Use
  Company Number: FR-TEVA-473378ISR

PATIENT
  Age: 36 Year
  Sex: Female

DRUGS (2)
  1. COPAXONE [Suspect]
     Indication: MULTIPLE SCLEROSIS
     Dates: start: 200302, end: 201302
  2. COPAXONE [Suspect]
     Dates: start: 201308

REACTIONS (4)
  - Neuralgic amyotrophy [Not Recovered/Not Resolved]
  - Disability [Not Recovered/Not Resolved]
  - Winged scapula [Not Recovered/Not Resolved]
  - Musculoskeletal pain [Not Recovered/Not Resolved]
